FAERS Safety Report 8968173 (Version 1)
Quarter: 2012Q4

REPORT INFORMATION
  Report Type: 
  Country: US (occurrence: US)
  Receive Date: 20121218
  Receipt Date: 20121218
  Transmission Date: 20130627
  Serious: No
  Sender: FDA-Public Use
  Company Number: US-PFIZER INC-2012315593

PATIENT
  Age: 73 Year
  Sex: Female
  Weight: 93 kg

DRUGS (3)
  1. MISOPROSTOL [Suspect]
     Indication: PROPHYLAXIS
     Dosage: 200 ug, 2x/day
     Route: 048
  2. DICLOFENAC SODIUM [Suspect]
     Indication: RHEUMATOID ARTHRITIS
     Dosage: 75 mg, 2x/day
     Route: 048
  3. LASIX [Concomitant]
     Indication: RHEUMATOID ARTHRITIS
     Dosage: 1 mg, daily

REACTIONS (1)
  - Drug ineffective [Unknown]
